FAERS Safety Report 4978432-2 (Version None)
Quarter: 2006Q1

REPORT INFORMATION
  Report Type: 
  Country: None (occurrence: None)
  Receive Date: 20060216
  Receipt Date: 20051118
  Transmission Date: 20060701
  Serious: No
  Sender: FDA-Public Use
  Company Number: TPA2005A01526

PATIENT
  Age: 34 Year
  Sex: Male
  Weight: 72.5755 kg

DRUGS (3)
  1. ROZEREM [Suspect]
     Indication: ANXIETY
     Dosage: 8 MG, QHS, PER ORAL
     Route: 048
     Dates: start: 20051117
  2. ROZEREM [Suspect]
     Indication: INSOMNIA
     Dosage: 8 MG, QHS, PER ORAL
     Route: 048
     Dates: start: 20051117
  3. ZOLOFT [Concomitant]

REACTIONS (2)
  - INSOMNIA [None]
  - THERAPEUTIC RESPONSE DECREASED [None]
